FAERS Safety Report 19688585 (Version 1)
Quarter: 2021Q3

REPORT INFORMATION
  Report Type: Spontaneous
  Country: US (occurrence: US)
  Receive Date: 20210811
  Receipt Date: 20210811
  Transmission Date: 20211014
  Serious: No
  Sender: FDA-Public Use
  Company Number: US-SA-2021SA261204

PATIENT
  Sex: Male

DRUGS (1)
  1. TAXOTERE [Suspect]
     Active Substance: DOCETAXEL
     Dosage: DRUG STRUCTURE DOSAGE : 162 MG DRUG INTERVAL DOSAGE : N/A
     Dates: start: 20210802

REACTIONS (1)
  - Adverse drug reaction [Unknown]
